FAERS Safety Report 21283437 (Version 1)
Quarter: 2022Q3

REPORT INFORMATION
  Report Type: Spontaneous
  Country: US (occurrence: None)
  Receive Date: 20220831
  Receipt Date: 20220831
  Transmission Date: 20221027
  Serious: No
  Sender: FDA-Public Use
  Company Number: None

PATIENT
  Age: 46 Year
  Sex: Female

DRUGS (1)
  1. OTEZLA [Suspect]
     Active Substance: APREMILAST
     Indication: Psoriatic arthropathy
     Dosage: OTHER QUANTITY : 10/20/30;?OTHER FREQUENCY : TITRATION;?
     Route: 048
     Dates: start: 20220810

REACTIONS (5)
  - Abdominal discomfort [None]
  - Headache [None]
  - Pain [None]
  - Fatigue [None]
  - Drug ineffective [None]

NARRATIVE: CASE EVENT DATE: 20220810
